FAERS Safety Report 16179036 (Version 1)
Quarter: 2019Q2

REPORT INFORMATION
  Report Type: Spontaneous
  Country: GB (occurrence: GB)
  Receive Date: 20190410
  Receipt Date: 20190410
  Transmission Date: 20190711
  Serious: Yes (Other)
  Sender: FDA-Public Use
  Company Number: PHHY2019GB076570

PATIENT
  Age: 43 Year
  Sex: Female

DRUGS (2)
  1. ETOPOSIDE. [Suspect]
     Active Substance: ETOPOSIDE
     Indication: GESTATIONAL TROPHOBLASTIC TUMOUR
     Dosage: ONE HIGH UNSPECIFIED DOSE
     Route: 065
  2. CARBOPLATIN. [Suspect]
     Active Substance: CARBOPLATIN
     Indication: GESTATIONAL TROPHOBLASTIC TUMOUR
     Dosage: ONE HIGH UNSPECIFIED DOSE
     Route: 065

REACTIONS (2)
  - Haematotoxicity [Unknown]
  - Maternal exposure during pregnancy [Unknown]
